FAERS Safety Report 25379595 (Version 1)
Quarter: 2025Q2

REPORT INFORMATION
  Report Type: Spontaneous
  Country: US (occurrence: US)
  Receive Date: 20250530
  Receipt Date: 20250530
  Transmission Date: 20250716
  Serious: Yes (Hospitalization)
  Sender: EISAI
  Company Number: US-Eisai-EC-2025-189667

PATIENT
  Age: 85 Year
  Sex: Female

DRUGS (2)
  1. LEQEMBI [Suspect]
     Active Substance: LECANEMAB-IRMB
     Indication: Dementia Alzheimer^s type
     Dates: start: 20240912, end: 20250512
  2. ELIQUIS [Concomitant]
     Active Substance: APIXABAN
     Indication: Product used for unknown indication

REACTIONS (2)
  - Heart rate decreased [Recovered/Resolved]
  - Troponin increased [Recovered/Resolved]

NARRATIVE: CASE EVENT DATE: 20250501
